FAERS Safety Report 6951707-3 (Version None)
Quarter: 2010Q3

REPORT INFORMATION
  Report Type: 
  Country: None (occurrence: None)
  Receive Date: 20100828
  Receipt Date: 20100412
  Transmission Date: 20110219
  Serious: No
  Sender: FDA-Public Use
  Company Number: US-ABBOTT-10P-163-0637655-00

PATIENT
  Sex: Female
  Weight: 67.646 kg

DRUGS (5)
  1. NIASPAN [Suspect]
     Indication: DYSLIPIDAEMIA
     Dosage: 500MG DAILY AT BEDTIME
     Route: 048
     Dates: start: 20100322
  2. NIASPAN [Suspect]
     Dosage: 500MG DAILY AT BEDTIME
     Route: 048
  3. ASPIRIN [Concomitant]
     Indication: PRODUCT USED FOR UNKNOWN INDICATION
     Dosage: 81MG DAILY
     Route: 048
  4. UNKNOWN EYE DROP MEDICATION [Concomitant]
     Indication: INTRAOCULAR PRESSURE INCREASED
  5. XANAX [Concomitant]
     Indication: INSOMNIA

REACTIONS (1)
  - FATIGUE [None]
